FAERS Safety Report 7750248-3 (Version None)
Quarter: 2011Q3

REPORT INFORMATION
  Report Type: 
  Country: None (occurrence: None)
  Receive Date: 20110914
  Receipt Date: 20110905
  Transmission Date: 20111222
  Serious: Yes (Other)
  Sender: FDA-Public Use
  Company Number: IE-BAXTER-2011BH028630

PATIENT
  Age: 9 Year
  Sex: Female

DRUGS (5)
  1. SODIUM CHLORIDE 0.9% IN PLASTIC CONTAINER [Suspect]
     Indication: CYSTIC FIBROSIS
     Route: 042
     Dates: start: 20110830, end: 20110906
  2. TOBRAMYCIN [Suspect]
     Indication: CYSTIC FIBROSIS
     Route: 042
     Dates: start: 20110830, end: 20110906
  3. ERYTHROMYCIN [Concomitant]
     Indication: PRODUCT USED FOR UNKNOWN INDICATION
     Route: 065
  4. TOBRAMYCIN [Concomitant]
     Indication: PRODUCT USED FOR UNKNOWN INDICATION
     Route: 055
  5. SODIUM CHLORIDE 0.9% IN PLASTIC CONTAINER [Suspect]
     Indication: MEDICATION DILUTION
     Route: 042
     Dates: start: 20110830, end: 20110906

REACTIONS (1)
  - ANTIBIOTIC LEVEL ABOVE THERAPEUTIC [None]
